FAERS Safety Report 16672845 (Version 1)
Quarter: 2019Q3

REPORT INFORMATION
  Report Type: Report from Study
  Country: US (occurrence: US)
  Receive Date: 20190806
  Receipt Date: 20190806
  Transmission Date: 20191004
  Serious: Yes (Death)
  Sender: FDA-Public Use
  Company Number: US-TAIHO ONCOLOGY  INC-EU-2019-02581

PATIENT
  Age: 53 Year
  Sex: Male
  Weight: 72.96 kg

DRUGS (8)
  1. THERMOTABS [Concomitant]
     Dosage: NI
  2. VITAMIN D [Concomitant]
     Active Substance: VITAMIN D NOS
     Dosage: NI
  3. STIVARGA [Concomitant]
     Active Substance: REGORAFENIB
     Dosage: NI
  4. VITAMIN C [Concomitant]
     Active Substance: ASCORBIC ACID
     Dosage: NI
  5. LONSURF [Suspect]
     Active Substance: TIPIRACIL HYDROCHLORIDE\TRIFLURIDINE
     Indication: PRODUCT USED FOR UNKNOWN INDICATION
     Dosage: CURRENT CYCLE UNKNOWN
     Route: 048
     Dates: start: 20190604
  6. DEXAMETHASONE. [Concomitant]
     Active Substance: DEXAMETHASONE
     Dosage: NI
  7. PRILOSEC [Concomitant]
     Active Substance: OMEPRAZOLE MAGNESIUM
     Dosage: NI
  8. LOVENOX [Concomitant]
     Active Substance: ENOXAPARIN SODIUM
     Dosage: NI

REACTIONS (1)
  - Death [Fatal]

NARRATIVE: CASE EVENT DATE: 20190729
